FAERS Safety Report 6571038-3 (Version None)
Quarter: 2010Q1

REPORT INFORMATION
  Report Type: 
  Country: None (occurrence: None)
  Receive Date: 20100203
  Receipt Date: 20100203
  Transmission Date: 20100710
  Serious: Yes (Hospitalization)
  Sender: FDA-Public Use
  Company Number: None

PATIENT
  Sex: Female
  Weight: 100.2449 kg

DRUGS (2)
  1. FERAHEME [Suspect]
     Indication: IRON DEFICIENCY ANAEMIA
     Dosage: 510 MG ONCE IV BOLUS
     Route: 040
     Dates: start: 20100201, end: 20100201
  2. FERAHEME [Suspect]
     Indication: RENAL FAILURE CHRONIC
     Dosage: 510 MG ONCE IV BOLUS
     Route: 040
     Dates: start: 20100201, end: 20100201

REACTIONS (6)
  - CHEST DISCOMFORT [None]
  - NAUSEA [None]
  - PRURITUS [None]
  - SWOLLEN TONGUE [None]
  - UNRESPONSIVE TO STIMULI [None]
  - VOMITING [None]
